FAERS Safety Report 10190575 (Version 1)
Quarter: 2014Q2

REPORT INFORMATION
  Report Type: Spontaneous
  Country: MX (occurrence: MX)
  Receive Date: 20140523
  Receipt Date: 20140523
  Transmission Date: 20141212
  Serious: Yes (Other)
  Sender: FDA-Public Use
  Company Number: MX-ROCHE-1404122

PATIENT
  Sex: Female
  Weight: 60 kg

DRUGS (4)
  1. XENICAL [Suspect]
     Indication: PRODUCT USED FOR UNKNOWN INDICATION
     Route: 048
     Dates: start: 2012, end: 201312
  2. XENICAL [Suspect]
     Route: 048
     Dates: start: 201312, end: 20140516
  3. XENICAL [Suspect]
     Route: 048
     Dates: start: 20140516
  4. ZENOCEF [Concomitant]
     Indication: CONSTIPATION
     Dosage: 2 TABLETS BEFORE GOING TO BED
     Route: 048
     Dates: start: 201403

REACTIONS (4)
  - Lung neoplasm malignant [Recovered/Resolved]
  - Frequent bowel movements [Recovered/Resolved]
  - Flatulence [Recovered/Resolved]
  - Steatorrhoea [Recovered/Resolved]
